FAERS Safety Report 12138358 (Version 4)
Quarter: 2016Q1

REPORT INFORMATION
  Report Type: Report from Study
  Country: VE (occurrence: VE)
  Receive Date: 20160302
  Receipt Date: 20160330
  Transmission Date: 20160526
  Serious: Yes (Death, Other)
  Sender: FDA-Public Use
  Company Number: PHHY2016VE027875

PATIENT
  Age: 71 Year
  Sex: Male

DRUGS (7)
  1. ZOLADEX [Concomitant]
     Active Substance: GOSERELIN ACETATE
     Indication: PRODUCT USED FOR UNKNOWN INDICATION
     Dosage: 10.8 MG, Q3MO
     Route: 058
     Dates: start: 20141013
  2. EXJADE [Suspect]
     Active Substance: DEFERASIROX
     Indication: IRON OVERLOAD
     Dosage: 3 DF, QD
     Route: 048
     Dates: start: 20151116
  3. DECAPEPTYL//TRIPTORELIN ACETATE [Concomitant]
     Indication: PRODUCT USED FOR UNKNOWN INDICATION
     Dosage: 3.75 MG, QMO
     Route: 058
     Dates: start: 20140429
  4. RECORMON//EPOETIN BETA [Concomitant]
     Indication: BLOOD DISORDER
     Dosage: 3000 IU, QW
     Route: 058
     Dates: start: 20151116, end: 20160201
  5. RECORMON//EPOETIN BETA [Concomitant]
     Dosage: 60000 IU, QW
     Route: 058
     Dates: start: 20151215
  6. ZOMETA [Suspect]
     Active Substance: ZOLEDRONIC ACID
     Indication: PROSTATE CANCER METASTATIC
     Dosage: 4 MG, QMO (MONTHLY)
     Route: 042
     Dates: start: 20141203
  7. CALUTOL [Concomitant]
     Indication: PRODUCT USED FOR UNKNOWN INDICATION
     Dosage: 50 MG, QD
     Route: 048
     Dates: start: 20140429

REACTIONS (4)
  - Prostate cancer metastatic [Fatal]
  - Bone marrow failure [Unknown]
  - Haemoglobin decreased [Unknown]
  - Serum ferritin increased [Unknown]

NARRATIVE: CASE EVENT DATE: 20151106
